FAERS Safety Report 8798162 (Version 2)
Quarter: 2012Q4

REPORT INFORMATION
  Report Type: 
  Country: US (occurrence: US)
  Receive Date: 20120920
  Receipt Date: 20121115
  Transmission Date: 20130627
  Serious: Yes (Other)
  Sender: FDA-Public Use
  Company Number: US-ASTRAZENECA-2012SE71538

PATIENT
  Age: 50 Year
  Sex: Female

DRUGS (1)
  1. NEXIUM [Suspect]
     Route: 048

REACTIONS (8)
  - Concussion [Unknown]
  - Multiple allergies [Unknown]
  - Adverse event [Unknown]
  - Dysphonia [Unknown]
  - Memory impairment [Unknown]
  - Dysgraphia [Unknown]
  - Sinus disorder [Unknown]
  - Headache [Unknown]
